FAERS Safety Report 17669852 (Version 1)
Quarter: 2020Q2

REPORT INFORMATION
  Report Type: Spontaneous
  Country: US (occurrence: US)
  Receive Date: 20200414
  Receipt Date: 20200414
  Transmission Date: 20200713
  Serious: No
  Sender: FDA-Public Use
  Company Number: None

PATIENT
  Age: 86 Year
  Sex: Male

DRUGS (1)
  1. IRINOTECAN 100MG/5ML SDV INJ [Suspect]
     Active Substance: IRINOTECAN
     Dosage: ?          OTHER FREQUENCY:OTHER;?
     Route: 041
     Dates: start: 201811

REACTIONS (1)
  - Hospitalisation [None]

NARRATIVE: CASE EVENT DATE: 20200414
